FAERS Safety Report 4454629-5 (Version None)
Quarter: 2004Q3

REPORT INFORMATION
  Report Type: 
  Country: None (occurrence: None)
  Receive Date: 20040920
  Receipt Date: 20040920
  Transmission Date: 20050211
  Serious: Yes (Life-Threatening)
  Sender: FDA-Public Use
  Company Number: None

PATIENT
  Age: 34 Year
  Sex: Male
  Weight: 86.36 kg

DRUGS (1)
  1. DOXYLAMINE SUCCINATE [Suspect]
     Dosage: 22.5 ML PO
     Route: 048
     Dates: start: 20040707, end: 20040707

REACTIONS (7)
  - ANGIONEUROTIC OEDEMA [None]
  - BRONCHOSPASM [None]
  - CHEST PAIN [None]
  - HYPERTENSION [None]
  - NASAL CONGESTION [None]
  - SWELLING FACE [None]
  - TACHYCARDIA [None]
